FAERS Safety Report 7664457-5 (Version None)
Quarter: 2011Q3

REPORT INFORMATION
  Report Type: 
  Country: None (occurrence: None)
  Receive Date: 20110806
  Receipt Date: 20110209
  Transmission Date: 20111222
  Serious: No
  Sender: FDA-Public Use
  Company Number: US-ABBOTT-11P-163-0695058-00

PATIENT
  Weight: 83.99 kg

DRUGS (2)
  1. NIASPAN [Suspect]
     Indication: BLOOD CHOLESTEROL INCREASED
     Dosage: NOT REPORTED.
     Dates: start: 20070101
  2. BEN GAY [Concomitant]
     Indication: MYALGIA
     Route: 061
     Dates: start: 20110102, end: 20110102

REACTIONS (4)
  - FLUSHING [None]
  - PAIN [None]
  - FEELING HOT [None]
  - MYALGIA [None]
